FAERS Safety Report 6437549-6 (Version None)
Quarter: 2009Q4

REPORT INFORMATION
  Report Type: 
  Country: None (occurrence: None)
  Receive Date: 20091112
  Receipt Date: 20091014
  Transmission Date: 20100525
  Serious: No
  Sender: FDA-Public Use
  Company Number: US-BAYER-200915564BCC

PATIENT
  Age: 46 Year
  Sex: Male

DRUGS (11)
  1. ALEVE (CAPLET) [Suspect]
     Indication: DRUG USE FOR UNKNOWN INDICATION
     Route: 048
     Dates: start: 20091012
  2. AMBIEN [Concomitant]
     Route: 065
  3. TRAZODONE HCL [Concomitant]
     Route: 065
  4. KLONOPIN [Concomitant]
     Route: 065
  5. ADVAIR DISKUS 100/50 [Concomitant]
     Route: 065
  6. MAALOX [Concomitant]
     Route: 065
  7. COLACE [Concomitant]
     Route: 065
  8. THORAZINE [Concomitant]
     Route: 065
  9. DEPAKOTE [Concomitant]
     Route: 065
  10. PROZAC [Concomitant]
     Route: 065
  11. MIRALAX [Concomitant]
     Route: 065

REACTIONS (3)
  - BURNING SENSATION [None]
  - ERYTHEMA [None]
  - PRURITUS GENERALISED [None]
